FAERS Safety Report 19460575 (Version 4)
Quarter: 2022Q2

REPORT INFORMATION
  Report Type: Other
  Country: DE (occurrence: None)
  Receive Date: 20210625
  Receipt Date: 20220525
  Transmission Date: 20220720
  Serious: Yes (Hospitalization)
  Sender: FDA-Public Use
  Company Number: DE-ROCHE-2852288

PATIENT
  Age: 28 Year
  Sex: Female
  Weight: 75.6 kg

DRUGS (6)
  1. OCRELIZUMAB [Suspect]
     Active Substance: OCRELIZUMAB
     Indication: Multiple sclerosis
     Route: 065
     Dates: start: 20200703, end: 20200703
  2. FOLIC ACID [Concomitant]
     Active Substance: FOLIC ACID
     Indication: Prophylaxis
     Dates: start: 20200716
  3. MULTILIND [Concomitant]
     Indication: Pruritus
     Dates: start: 201912, end: 202011
  4. DIMETHINDENE [Concomitant]
     Active Substance: DIMETHINDENE
     Indication: Prophylaxis
     Dates: start: 20200703, end: 20200703
  5. OMEGA-3 FATTY ACIDS [Concomitant]
     Active Substance: OMEGA-3 FATTY ACIDS
     Indication: Prophylaxis
     Dates: start: 20200908
  6. INFLUENZA VIRUS VACCINE [Concomitant]
     Active Substance: INFLUENZA VIRUS VACCINE
     Dates: start: 20201006

REACTIONS (2)
  - Maternal exposure before pregnancy [Unknown]
  - Premature rupture of membranes [Recovered/Resolved]

NARRATIVE: CASE EVENT DATE: 20210411
